FAERS Safety Report 25165473 (Version 1)
Quarter: 2025Q2

REPORT INFORMATION
  Report Type: Spontaneous
  Country: CN (occurrence: CN)
  Receive Date: 20250407
  Receipt Date: 20250407
  Transmission Date: 20250717
  Serious: Yes (Hospitalization)
  Sender: ROCHE
  Company Number: CN-ROCHE-10000249489

PATIENT
  Age: 61 Year
  Sex: Female
  Weight: 59.5 kg

DRUGS (8)
  1. PERJETA [Suspect]
     Active Substance: PERTUZUMAB
     Indication: Invasive ductal breast carcinoma
     Route: 042
     Dates: start: 20250313, end: 20250313
  2. PERJETA [Suspect]
     Active Substance: PERTUZUMAB
     Indication: Lymphoma
  3. HERCEPTIN [Suspect]
     Active Substance: TRASTUZUMAB
     Indication: Lymphoma
     Route: 042
     Dates: start: 20250313, end: 20250313
  4. HERCEPTIN [Suspect]
     Active Substance: TRASTUZUMAB
     Indication: Invasive ductal breast carcinoma
  5. CARBOPLATIN [Suspect]
     Active Substance: CARBOPLATIN
     Indication: Lymphoma
     Route: 042
     Dates: start: 20250314, end: 20250314
  6. CARBOPLATIN [Suspect]
     Active Substance: CARBOPLATIN
     Indication: Invasive ductal breast carcinoma
  7. PACLITAXEL [Suspect]
     Active Substance: PACLITAXEL
     Indication: Invasive ductal breast carcinoma
     Route: 042
     Dates: start: 20250314, end: 20250314
  8. PACLITAXEL [Suspect]
     Active Substance: PACLITAXEL
     Indication: Lymphoma

REACTIONS (1)
  - Myelosuppression [Recovering/Resolving]

NARRATIVE: CASE EVENT DATE: 20250327
